FAERS Safety Report 5119866-5 (Version None)
Quarter: 2006Q4

REPORT INFORMATION
  Report Type: 
  Country: None (occurrence: None)
  Receive Date: 20061003
  Receipt Date: 20060925
  Transmission Date: 20070319
  Serious: Yes (Hospitalization)
  Sender: FDA-Public Use
  Company Number: FR-BOEHRINGER INGELHEIM PHARMACEUTICALS, INC.-2006-FF-00917FF

PATIENT
  Age: 94 Year
  Sex: Male

DRUGS (5)
  1. JOSIR [Suspect]
     Route: 048
  2. LOXEN [Concomitant]
     Route: 048
  3. LORAZEPAM [Concomitant]
     Route: 048
  4. LASIX [Concomitant]
     Route: 048
  5. FORLAX [Concomitant]
     Route: 048

REACTIONS (2)
  - ANAEMIA [None]
  - THROMBOCYTOPENIC PURPURA [None]
